FAERS Safety Report 5412708-X (Version None)
Quarter: 2007Q3

REPORT INFORMATION
  Report Type: 
  Country: None (occurrence: None)
  Receive Date: 20070809
  Receipt Date: 20070725
  Transmission Date: 20080115
  Serious: Yes (Death, Hospitalization)
  Sender: FDA-Public Use
  Company Number: 158519ISR

PATIENT
  Age: 42 Year
  Sex: Male

DRUGS (2)
  1. CISPLATIN [Suspect]
     Indication: OESOPHAGEAL ADENOCARCINOMA
     Dosage: INTRAVENOUS
     Route: 042
  2. FLUOROURACIL [Suspect]
     Indication: OESOPHAGEAL ADENOCARCINOMA
     Dosage: INTRAVENOUS

REACTIONS (11)
  - ACUTE ABDOMEN [None]
  - AORTIC THROMBOSIS [None]
  - ASTHENIA [None]
  - HAEMODIALYSIS [None]
  - INTESTINAL INFARCTION [None]
  - INTRACARDIAC THROMBUS [None]
  - PAIN IN EXTREMITY [None]
  - POST PROCEDURAL COMPLICATION [None]
  - RENAL FAILURE ACUTE [None]
  - RHABDOMYOLYSIS [None]
  - SEPSIS [None]
